FAERS Safety Report 6832265-0 (Version None)
Quarter: 2010Q3

REPORT INFORMATION
  Report Type: 
  Country: None (occurrence: None)
  Receive Date: 20100712
  Receipt Date: 20100707
  Transmission Date: 20110219
  Serious: Yes (Other)
  Sender: FDA-Public Use
  Company Number: CHPA2010US11134

PATIENT
  Age: 67 Year
  Sex: Female
  Weight: 49.887 kg

DRUGS (1)
  1. ASPIRIN [Suspect]
     Indication: RHEUMATOID ARTHRITIS
     Dosage: 650 MG, BID
     Route: 048

REACTIONS (5)
  - INTENTIONAL DRUG MISUSE [None]
  - LARYNGECTOMY [None]
  - OFF LABEL USE [None]
  - SURGERY [None]
  - WRONG TECHNIQUE IN DRUG USAGE PROCESS [None]
